FAERS Safety Report 21608122 (Version 13)
Quarter: 2025Q1

REPORT INFORMATION
  Report Type: Spontaneous
  Country: US (occurrence: US)
  Receive Date: 20221117
  Receipt Date: 20250110
  Transmission Date: 20250409
  Serious: Yes (Hospitalization, Other)
  Sender: VIIV
  Company Number: US-VIIV HEALTHCARE LIMITED-US2022AMR167092

PATIENT

DRUGS (3)
  1. DOVATO [Suspect]
     Active Substance: DOLUTEGRAVIR SODIUM\LAMIVUDINE
     Indication: HIV infection
     Dosage: 1 DF, QD (50 MG/300 MG)
     Route: 048
     Dates: start: 20221025
  2. AZT [Suspect]
     Active Substance: ZIDOVUDINE
     Indication: HIV infection
  3. TRIZIVIR [Suspect]
     Active Substance: ABACAVIR SULFATE\LAMIVUDINE\ZIDOVUDINE
     Indication: HIV infection
     Route: 048

REACTIONS (19)
  - Skin cancer [Not Recovered/Not Resolved]
  - Diverticulitis [Not Recovered/Not Resolved]
  - Haemorrhoids [Recovering/Resolving]
  - Lipoatrophy [Unknown]
  - Blood cholesterol increased [Unknown]
  - Depression [Unknown]
  - Influenza [Recovering/Resolving]
  - COVID-19 [Unknown]
  - General physical health deterioration [Not Recovered/Not Resolved]
  - Sinusitis [Not Recovered/Not Resolved]
  - Nasopharyngitis [Recovered/Resolved]
  - Multiple allergies [Not Recovered/Not Resolved]
  - Brain fog [Not Recovered/Not Resolved]
  - Cough [Not Recovered/Not Resolved]
  - Illness [Unknown]
  - Gastrooesophageal reflux disease [Unknown]
  - Facial wasting [Unknown]
  - Melanocytic naevus [Unknown]
  - Procedural pain [Recovering/Resolving]

NARRATIVE: CASE EVENT DATE: 20240501
